FAERS Safety Report 23029836 (Version 1)
Quarter: 2023Q4

REPORT INFORMATION
  Report Type: Spontaneous
  Country: AU (occurrence: AU)
  Receive Date: 20231004
  Receipt Date: 20231004
  Transmission Date: 20240110
  Serious: Yes (Other)
  Sender: FDA-Public Use
  Company Number: AU-BAXTER-2023BAX032125

PATIENT
  Sex: Male

DRUGS (10)
  1. DOXORUBICIN [Suspect]
     Active Substance: DOXORUBICIN
     Indication: Hodgkin^s disease
     Dosage: UNK, AS A PART OF ABVD REGIMEN
     Route: 065
  2. DOXORUBICIN [Suspect]
     Active Substance: DOXORUBICIN
     Dosage: UNK, AS A PART OF AVD REGIMEN
     Route: 065
  3. IFOSFAMIDE [Suspect]
     Active Substance: IFOSFAMIDE
     Indication: Hodgkin^s disease
     Dosage: UNK, AS A PART OF ICE SALVAGE
     Route: 065
  4. BLEOMYCIN [Suspect]
     Active Substance: BLEOMYCIN SULFATE
     Indication: Hodgkin^s disease
     Dosage: UNK, AS A PART OF ABVD REGIMEN
     Route: 065
  5. VINBLASTINE [Suspect]
     Active Substance: VINBLASTINE
     Indication: Hodgkin^s disease
     Dosage: UNK, AS A PART OF ABVD REGIMEN
     Route: 065
  6. VINBLASTINE [Suspect]
     Active Substance: VINBLASTINE
     Dosage: UNK, AS A PART OF AVD REGIMEN
     Route: 065
  7. DACARBAZINE [Suspect]
     Active Substance: DACARBAZINE
     Indication: Hodgkin^s disease
     Dosage: UNK, AS A PART OF ABVD REGIMEN
     Route: 065
  8. DACARBAZINE [Suspect]
     Active Substance: DACARBAZINE
     Dosage: UNK, AS A PART OF AVD REGIMEN
     Route: 065
  9. CARBOPLATIN [Suspect]
     Active Substance: CARBOPLATIN
     Indication: Hodgkin^s disease
     Dosage: UNK, AS A PART OF ICE SALVAGE
     Route: 065
  10. ETOPOSIDE [Suspect]
     Active Substance: ETOPOSIDE
     Indication: Hodgkin^s disease
     Dosage: UNK, AS A PART OF ICE SALVAGE
     Route: 065

REACTIONS (3)
  - Hodgkin^s disease recurrent [Unknown]
  - Hodgkin^s disease [Unknown]
  - Disease progression [Unknown]
